FAERS Safety Report 9742783 (Version 2)
Quarter: 2014Q3

REPORT INFORMATION
  Report Type: Spontaneous
  Country: US (occurrence: US)
  Receive Date: 20131210
  Receipt Date: 20140724
  Transmission Date: 20150326
  Serious: Yes (Hospitalization, Other)
  Sender: FDA-Public Use
  Company Number: UM-ALEXION PHARMACEUTICALS INC.-A201304004

PATIENT

DRUGS (2)
  1. ENOXAPARIN [Concomitant]
     Active Substance: ENOXAPARIN
     Indication: PRODUCT USED FOR UNKNOWN INDICATION
     Route: 065
  2. SOLIRIS [Suspect]
     Active Substance: ECULIZUMAB
     Indication: PAROXYSMAL NOCTURNAL HAEMOGLOBINURIA
     Dosage: UNK
     Route: 042

REACTIONS (11)
  - Peripheral ischaemia [Recovered/Resolved with Sequelae]
  - Skin ulcer [Recovered/Resolved]
  - Femoral artery occlusion [Unknown]
  - Leg amputation [Recovered/Resolved]
  - Paroxysmal nocturnal haemoglobinuria [Recovered/Resolved]
  - Mesenteric vein thrombosis [Unknown]
  - Condition aggravated [Recovered/Resolved]
  - Coronary artery bypass [Unknown]
  - Peripheral artery stenosis [Recovered/Resolved with Sequelae]
  - Graft thrombosis [Recovered/Resolved with Sequelae]
  - Wound sepsis [Recovered/Resolved]
